FAERS Safety Report 20942523 (Version 1)
Quarter: 2022Q2

REPORT INFORMATION
  Report Type: Other
  Country: US (occurrence: None)
  Receive Date: 20220610
  Receipt Date: 20220610
  Transmission Date: 20220721
  Serious: Yes (Other)
  Sender: FDA-Public Use
  Company Number: US-ROCHE-3108010

PATIENT
  Sex: Female
  Weight: 118 kg

DRUGS (10)
  1. OCREVUS [Suspect]
     Active Substance: OCRELIZUMAB
     Indication: Multiple sclerosis
     Route: 042
  2. TYLENOL [Concomitant]
     Active Substance: ACETAMINOPHEN
     Route: 048
  3. VITAMIN D3 [Concomitant]
     Active Substance: CHOLECALCIFEROL
     Route: 048
  4. DROSPIRENONE\ETHINYL ESTRADIOL [Concomitant]
     Active Substance: DROSPIRENONE\ETHINYL ESTRADIOL
     Route: 048
  5. ESCITALOPRAM [Concomitant]
     Active Substance: ESCITALOPRAM OXALATE
     Route: 048
  6. GABAPENTIN [Concomitant]
     Active Substance: GABAPENTIN
     Route: 048
  7. IBUPROFEN [Concomitant]
     Active Substance: IBUPROFEN
     Dosage: AS NEEDED.
     Route: 048
  8. LEVONORGESTREL [Concomitant]
     Active Substance: LEVONORGESTREL
     Route: 015
  9. LORAZEPAM [Concomitant]
     Active Substance: LORAZEPAM
     Route: 048
  10. PANTOPRAZOLE [Concomitant]
     Active Substance: PANTOPRAZOLE
     Dosage: TABLET DELAYED RELEASE RIZATRIPTAN 10 MG TABLET TAKE BY MOUTH EVERY MORNING (30-60 MINUTES BEFORE BR
     Route: 047

REACTIONS (17)
  - Migraine [Unknown]
  - Vitreous floaters [Unknown]
  - Psoriasis [Unknown]
  - Depression [Unknown]
  - Memory impairment [Unknown]
  - Muscle spasms [Unknown]
  - Paraesthesia [Unknown]
  - Ataxia [Unknown]
  - Eye pain [Unknown]
  - Diarrhoea [Unknown]
  - Gastrooesophageal reflux disease [Unknown]
  - Irritable bowel syndrome [Unknown]
  - Obesity [Unknown]
  - Panic disorder [Unknown]
  - Rheumatoid arthritis [Unknown]
  - Constipation [Unknown]
  - Deafness [Unknown]

NARRATIVE: CASE EVENT DATE: 20210101
